FAERS Safety Report 18252114 (Version 2)
Quarter: 2021Q2

REPORT INFORMATION
  Report Type: Spontaneous
  Country: US (occurrence: US)
  Receive Date: 20200910
  Receipt Date: 20210503
  Transmission Date: 20210717
  Serious: No
  Sender: FDA-Public Use
  Company Number: US-FARMAPROD-202003-0242

PATIENT
  Sex: Male
  Weight: 95.34 kg

DRUGS (13)
  1. OXERVATE [Suspect]
     Active Substance: CENEGERMIN-BKBJ
     Indication: ULCERATIVE KERATITIS
     Route: 047
     Dates: start: 20210127
  2. FAMVIR [Concomitant]
     Active Substance: FAMCICLOVIR
     Dates: start: 20191011
  3. METOCLOPRAMIDE. [Concomitant]
     Active Substance: METOCLOPRAMIDE
  4. OXERVATE [Suspect]
     Active Substance: CENEGERMIN-BKBJ
     Indication: PUNCTATE KERATITIS
  5. PRED ACETATE [Concomitant]
     Dosage: 1 DROP TWICE DAILY ON EACH EYE
     Route: 047
     Dates: start: 20180904
  6. OXYCODONE [Concomitant]
     Active Substance: OXYCODONE
  7. PANTOPRAZOLE [Concomitant]
     Active Substance: PANTOPRAZOLE
  8. PREDNISOLONE. [Concomitant]
     Active Substance: PREDNISOLONE
  9. FAMOTIDINE. [Concomitant]
     Active Substance: FAMOTIDINE
  10. AZITHROMYCIN ANHYDROUS. [Concomitant]
     Active Substance: AZITHROMYCIN ANHYDROUS
  11. CYCLOBENZAPRINE. [Concomitant]
     Active Substance: CYCLOBENZAPRINE
  12. LOTEMAX [Concomitant]
     Active Substance: LOTEPREDNOL ETABONATE
  13. OXERVATE [Suspect]
     Active Substance: CENEGERMIN-BKBJ
     Indication: NEUROTROPHIC KERATOPATHY
     Route: 047
     Dates: start: 20200109, end: 20200305

REACTIONS (5)
  - Eye pain [Unknown]
  - Photophobia [Recovering/Resolving]
  - Eyelid irritation [Unknown]
  - Malaise [Not Recovered/Not Resolved]
  - Eye irritation [Unknown]
